FAERS Safety Report 7078595-1 (Version None)
Quarter: 2010Q4

REPORT INFORMATION
  Report Type: 
  Country: None (occurrence: None)
  Receive Date: 20101101
  Receipt Date: 20101101
  Transmission Date: 20110411
  Serious: Yes (Disabling)
  Sender: FDA-Public Use
  Company Number: None

PATIENT
  Age: 60 Year
  Sex: Male
  Weight: 74.3899 kg

DRUGS (1)
  1. NASACORT AQ [Suspect]
     Indication: SINUSITIS
     Dosage: 1 TO 2 SPRAYES EACH NOSTRIL TWO TIMES DAILY NASAL
     Route: 045
     Dates: start: 20101020, end: 20101021

REACTIONS (2)
  - EPISTAXIS [None]
  - THROMBOSIS [None]
